FAERS Safety Report 14992154 (Version 1)
Quarter: 2018Q2

REPORT INFORMATION
  Report Type: Spontaneous
  Country: DE (occurrence: DE)
  Receive Date: 20180608
  Receipt Date: 20180608
  Transmission Date: 20180711
  Serious: Yes (Hospitalization)
  Sender: FDA-Public Use
  Company Number: DE-TEVA-2018-DE-903763

PATIENT
  Age: 66 Year
  Sex: Female
  Weight: 60.3 kg

DRUGS (7)
  1. DOXORUBICIN [Suspect]
     Active Substance: DOXORUBICIN
     Dosage: BY SCHEME, INJECTION/INFUSION SOLUTION
     Route: 065
  2. RITUXIMAB. [Suspect]
     Active Substance: RITUXIMAB
     Dosage: BY SCHEME, INJECTION/INFUSION SOLUTION
     Route: 065
  3. CYCLOPHOSPHAMIDE. [Suspect]
     Active Substance: CYCLOPHOSPHAMIDE
     Dosage: BY SCHEME, INJECTION/INFUSION SOLUTION
     Route: 065
  4. HYDROCHLOROTHIAZID [Concomitant]
     Active Substance: HYDROCHLOROTHIAZIDE
     Dosage: 25 MILLIGRAM DAILY; 25 MG, 1-0-0-0, TABLETTES
     Route: 048
  5. KALIUM [Concomitant]
     Active Substance: POTASSIUM CHLORIDE
     Dosage: 20 MMOL, 2-2-2-0, BAG
     Route: 048
  6. VINCRISTINE [Suspect]
     Active Substance: VINCRISTINE
     Dosage: BY SCHEME, INJECTION/INFUSION SOLUTION
     Route: 042
  7. METHYLPREDNISOLONE. [Suspect]
     Active Substance: METHYLPREDNISOLONE
     Dosage: 100 MG, BY SCHEME, TABLETS
     Route: 048

REACTIONS (6)
  - Mantle cell lymphoma [Unknown]
  - Pyrexia [Unknown]
  - Abdominal pain upper [Unknown]
  - Febrile bone marrow aplasia [Unknown]
  - Nausea [Unknown]
  - Hyponatraemia [Unknown]
